FAERS Safety Report 6942444-X (Version None)
Quarter: 2010Q3

REPORT INFORMATION
  Report Type: 
  Country: None (occurrence: None)
  Receive Date: 20100826
  Receipt Date: 20100818
  Transmission Date: 20110219
  Serious: Yes (Hospitalization)
  Sender: FDA-Public Use
  Company Number: AU-JNJFOC-20081106424

PATIENT
  Age: 65 Year
  Sex: Female
  Weight: 64 kg

DRUGS (22)
  1. DOXORUBICIN HCL [Suspect]
     Indication: BREAST CANCER
     Route: 042
  2. CYCLOPHOSPHAMIDE [Suspect]
     Indication: BREAST CANCER
     Route: 065
  3. AMPHOTERICIN B [Concomitant]
     Indication: FUNGAL INFECTION
     Route: 048
  4. NILSTAT [Concomitant]
     Indication: FUNGAL INFECTION
     Route: 048
  5. NULYTELY [Concomitant]
     Dosage: 1-2 SACHETS AT NIGHT
     Route: 048
  6. DIAZEPAM [Concomitant]
     Route: 048
  7. EFFEXOR [Concomitant]
     Route: 048
  8. EFFEXOR [Concomitant]
     Dosage: MIDDAY
     Route: 048
  9. XYLOCAINE VISCOUS [Concomitant]
     Route: 048
  10. NAPROXEN [Concomitant]
     Route: 048
  11. CEPHALEXIN [Concomitant]
     Route: 048
  12. CALTRATE PLUS [Concomitant]
     Indication: NUTRITIONAL SUPPORT
     Route: 048
  13. DEXAMETHASONE [Concomitant]
     Indication: PREMEDICATION
     Dosage: AT NIGHT
     Route: 048
  14. COLOXYL SENNA [Concomitant]
     Route: 048
  15. TRAMADOL HCL [Concomitant]
     Indication: ANALGESIC THERAPY
     Route: 048
  16. OXYCODONE HCL EXTENDED-RELEASE [Concomitant]
     Indication: ANALGESIC THERAPY
     Dosage: 5-10 MG AS REQUIRED 4 TIMES A DAY
     Route: 048
  17. OXYCODONE HCL EXTENDED-RELEASE [Concomitant]
     Route: 048
  18. OMEPRAZOLE [Concomitant]
     Indication: GASTROOESOPHAGEAL REFLUX DISEASE
     Route: 048
  19. CEPACAINE [Concomitant]
     Route: 048
  20. CALCITRIOL [Concomitant]
     Indication: HYPOCALCAEMIA
     Route: 048
  21. HYDROCHLOROTHIZIDE [Concomitant]
     Indication: DIURETIC THERAPY
     Dosage: IN THE MORNING
     Route: 048
  22. LEVOTHYROXINE SODIUM [Concomitant]
     Indication: THYROID DISORDER
     Route: 048

REACTIONS (2)
  - LOCALISED INFECTION [None]
  - PAIN [None]
